FAERS Safety Report 5069539-2 (Version None)
Quarter: 2006Q3

REPORT INFORMATION
  Report Type: 
  Country: None (occurrence: None)
  Receive Date: 20060731
  Receipt Date: 20060720
  Transmission Date: 20061208
  Serious: Yes (Other)
  Sender: FDA-Public Use
  Company Number: 2006059678

PATIENT
  Age: 28 Year
  Sex: Female

DRUGS (4)
  1. VIRACEPT [Suspect]
     Indication: HIV TEST POSITIVE
     Dosage: 2500 MG, ORAL
     Route: 048
     Dates: start: 20051117
  2. COMBIVIR [Suspect]
     Indication: HIV TEST POSITIVE
     Dosage: 600/300 MG, ORAL
     Route: 048
     Dates: start: 20051117, end: 20060109
  3. ZERIT [Suspect]
     Indication: HIV TEST POSITIVE
     Dosage: 80 MG, ORAL
     Route: 048
     Dates: start: 20060109
  4. EPIVIR [Suspect]
     Indication: HIV TEST POSITIVE
     Dosage: 300 MG, ORAL
     Route: 048
     Dates: start: 20060109

REACTIONS (6)
  - ANAEMIA [None]
  - DRUG EXPOSURE DURING PREGNANCY [None]
  - FUNISITIS [None]
  - PHLEBITIS [None]
  - PLACENTAL DISORDER [None]
  - STILLBIRTH [None]
